FAERS Safety Report 18847191 (Version 1)
Quarter: 2021Q1

REPORT INFORMATION
  Report Type: Spontaneous
  Country: US (occurrence: US)
  Receive Date: 20210204
  Receipt Date: 20210204
  Transmission Date: 20210419
  Serious: No
  Sender: FDA-Public Use
  Company Number: US-PFIZER INC-2021092045

PATIENT
  Age: 31 Year
  Sex: Female

DRUGS (1)
  1. IBRANCE [Suspect]
     Active Substance: PALBOCICLIB
     Indication: BREAST CANCER FEMALE
     Dosage: 100 MG, CYCLIC (TAKE 1 CAP QD (ONCE DAILY) FOR 21 DAYS, THEN OFF 7 DAYS)
     Route: 048

REACTIONS (3)
  - Musculoskeletal stiffness [Unknown]
  - White blood cell count decreased [Unknown]
  - Constipation [Unknown]
